FAERS Safety Report 4382420-7 (Version None)
Quarter: 2004Q2

REPORT INFORMATION
  Report Type: 
  Country: None (occurrence: None)
  Receive Date: 20040617
  Receipt Date: 20040610
  Transmission Date: 20050107
  Serious: Yes (Life-Threatening, Hospitalization, Disabling)
  Sender: FDA-Public Use
  Company Number: 2004UW12084

PATIENT
  Age: 80 Year
  Sex: Male

DRUGS (3)
  1. ELAVIL [Suspect]
     Dosage: 25-50 MG
     Dates: start: 20040212, end: 20040520
  2. ASPIRIN [Concomitant]
  3. PERINDOPRIL [Concomitant]

REACTIONS (1)
  - ATRIAL FIBRILLATION [None]
